FAERS Safety Report 10425038 (Version 2)
Quarter: 2014Q3

REPORT INFORMATION
  Report Type: Spontaneous
  Country: DE (occurrence: DE)
  Receive Date: 20140902
  Receipt Date: 20140918
  Transmission Date: 20150326
  Serious: Yes (Hospitalization)
  Sender: FDA-Public Use
  Company Number: DE-TEVA-505764GER

PATIENT
  Age: 68 Year
  Sex: Female

DRUGS (1)
  1. TAXUS (PACLITAXEL) [Suspect]
     Active Substance: PACLITAXEL
     Indication: CORONARY ARTERY DISEASE
     Dosage: DRUG-ELUTING STENT
     Route: 050

REACTIONS (1)
  - Cardiac pseudoaneurysm [Recovering/Resolving]
